FAERS Safety Report 14875914 (Version 1)
Quarter: 2018Q2

REPORT INFORMATION
  Report Type: Report from Study
  Country: None (occurrence: US)
  Receive Date: 20180510
  Receipt Date: 20180510
  Transmission Date: 20180711
  Serious: Yes (Hospitalization, Other)
  Sender: FDA-Public Use
  Company Number: US-ABBVIE-17K-163-1979784-00

PATIENT
  Age: 63 Year
  Sex: Female
  Weight: 89.44 kg

DRUGS (7)
  1. ATORVASTATIN [Concomitant]
     Active Substance: ATORVASTATIN
     Indication: PROPHYLAXIS
  2. MELOXICAM. [Concomitant]
     Active Substance: MELOXICAM
     Indication: ARTHRALGIA
  3. CIPRO [Suspect]
     Active Substance: CIPROFLOXACIN HYDROCHLORIDE
     Route: 065
     Dates: start: 201709, end: 2017
  4. POTASSIUM [Concomitant]
     Active Substance: POTASSIUM
     Indication: ELECTROLYTE SUBSTITUTION THERAPY
  5. HUMIRA [Suspect]
     Active Substance: ADALIMUMAB
     Indication: PSORIASIS
     Route: 058
     Dates: start: 2012, end: 201301
  6. HUMIRA [Suspect]
     Active Substance: ADALIMUMAB
     Indication: PSORIATIC ARTHROPATHY
     Route: 058
     Dates: start: 201304
  7. CIPRO [Suspect]
     Active Substance: CIPROFLOXACIN HYDROCHLORIDE
     Indication: DIVERTICULITIS
     Route: 065
     Dates: start: 201707, end: 2017

REACTIONS (23)
  - Gait disturbance [Recovered/Resolved]
  - Gastrointestinal pain [Recovered/Resolved]
  - Malaise [Recovered/Resolved]
  - Heart rate irregular [Recovering/Resolving]
  - Asthenia [Recovered/Resolved]
  - Arthralgia [Recovered/Resolved]
  - Rash [Recovered/Resolved]
  - Atrial fibrillation [Recovering/Resolving]
  - Nephrolithiasis [Not Recovered/Not Resolved]
  - Arthritis [Recovering/Resolving]
  - Rash [Recovered/Resolved]
  - Pain [Recovered/Resolved]
  - Diverticulitis [Recovering/Resolving]
  - Myocardial infarction [Recovered/Resolved]
  - Joint range of motion decreased [Recovered/Resolved]
  - Cystitis [Recovered/Resolved]
  - Pain [Recovered/Resolved]
  - Dissociation [Recovered/Resolved]
  - Dehydration [Recovered/Resolved]
  - Psoriatic arthropathy [Recovering/Resolving]
  - Myocardial infarction [Recovered/Resolved]
  - International normalised ratio increased [Recovered/Resolved]
  - Diverticulitis [Recovered/Resolved]

NARRATIVE: CASE EVENT DATE: 201205
